FAERS Safety Report 7402031-6 (Version None)
Quarter: 2011Q2

REPORT INFORMATION
  Report Type: 
  Country: None (occurrence: None)
  Receive Date: 20110408
  Receipt Date: 20110330
  Transmission Date: 20111010
  Serious: Yes (Life-Threatening, Hospitalization)
  Sender: FDA-Public Use
  Company Number: ES-PFIZER INC-2010139154

PATIENT
  Age: 40 Year
  Sex: Female

DRUGS (5)
  1. DULOXETINE [Suspect]
     Indication: DEPRESSION
     Dosage: UNK
     Route: 048
  2. ALPRAZOLAM [Suspect]
     Indication: ANXIETY
     Dosage: UNK
     Route: 048
  3. ZOLPIDEM [Suspect]
     Indication: DEPRESSION
     Dosage: 10 MG, 1X/DAY
     Route: 048
  4. TOPIRAMATE [Suspect]
     Indication: MIGRAINE
     Dosage: UNK
     Route: 048
  5. VANDRAL [Suspect]
     Indication: DEPRESSION
     Dosage: 75 MG, 1X/DAY
     Route: 048

REACTIONS (3)
  - SUICIDE ATTEMPT [None]
  - INTENTIONAL OVERDOSE [None]
  - SUICIDAL IDEATION [None]
